FAERS Safety Report 17460717 (Version 1)
Quarter: 2020Q1

REPORT INFORMATION
  Report Type: Spontaneous
  Country: US (occurrence: US)
  Receive Date: 20200214
  Receipt Date: 20200214
  Transmission Date: 20200409
  Serious: No
  Sender: FDA-Public Use
  Company Number: None

PATIENT
  Age: 67 Year
  Sex: Female

DRUGS (1)
  1. VERZENIO [Suspect]
     Active Substance: ABEMACICLIB
     Indication: BREAST CANCER
     Route: 048
     Dates: start: 201811, end: 20200214

REACTIONS (3)
  - White blood cell count decreased [None]
  - Red blood cell count decreased [None]
  - Therapy change [None]

NARRATIVE: CASE EVENT DATE: 20200214
